FAERS Safety Report 16832901 (Version 1)
Quarter: 2019Q3

REPORT INFORMATION
  Report Type: Spontaneous
  Country: AU (occurrence: AU)
  Receive Date: 20190920
  Receipt Date: 20190920
  Transmission Date: 20191005
  Serious: Yes (Hospitalization, Other)
  Sender: FDA-Public Use
  Company Number: AU-TAKEDA-2019TUS052391

PATIENT
  Age: 34 Year
  Sex: Female

DRUGS (4)
  1. THIOGUANINE [Concomitant]
     Active Substance: THIOGUANINE
     Dosage: UNK
  2. ENTYVIO [Suspect]
     Active Substance: VEDOLIZUMAB
     Indication: CROHN^S DISEASE
     Dosage: UNK
     Route: 065
  3. PREDNISOLONE                       /00016204/ [Concomitant]
     Active Substance: PREDNISOLONE
     Dosage: UNK
  4. ADALIMUMAB [Concomitant]
     Active Substance: ADALIMUMAB
     Dosage: UNK

REACTIONS (4)
  - Stomal hernia [Unknown]
  - Off label use [Unknown]
  - Crohn^s disease [Unknown]
  - Small intestinal obstruction [Unknown]
